FAERS Safety Report 13646529 (Version 1)
Quarter: 2017Q2

REPORT INFORMATION
  Report Type: Spontaneous
  Country: US (occurrence: US)
  Receive Date: 20170613
  Receipt Date: 20170613
  Transmission Date: 20170830
  Serious: Yes (Other)
  Sender: FDA-Public Use
  Company Number: PHEH2017US017268

PATIENT
  Sex: Female

DRUGS (1)
  1. ZORTRESS [Suspect]
     Active Substance: EVEROLIMUS
     Indication: RENAL AND LIVER TRANSPLANT
     Route: 048

REACTIONS (1)
  - Pneumonitis [Unknown]
